FAERS Safety Report 5088769-7 (Version None)
Quarter: 2006Q3

REPORT INFORMATION
  Report Type: 
  Country: None (occurrence: None)
  Receive Date: 20060824
  Receipt Date: 20060824
  Transmission Date: 20061208
  Serious: Yes (Hospitalization)
  Sender: FDA-Public Use
  Company Number: None

PATIENT
  Sex: Male
  Weight: 54 kg

DRUGS (5)
  1. IRESSA [Suspect]
     Indication: NEOPLASM MALIGNANT
     Dosage: 250 MG DAILY PO
     Route: 048
     Dates: start: 20050411, end: 20060806
  2. PREDNISONE TAB [Suspect]
     Indication: DYSPNOEA
     Dosage: 5 MG BID PO
     Route: 048
  3. LEXAPRO [Suspect]
     Dosage: 10 MG DAILY PO
     Route: 048
  4. LEVOXYL [Suspect]
     Indication: HYPOTHYROIDISM
     Dosage: 75 MG DAILY PO
     Route: 048
     Dates: start: 20060112
  5. PEPCID [Suspect]
     Indication: GASTROOESOPHAGEAL REFLUX DISEASE
     Dosage: 20 MG DAILY PO
     Route: 048

REACTIONS (5)
  - ACNE [None]
  - INFECTION [None]
  - NO THERAPEUTIC RESPONSE [None]
  - SKIN TOXICITY [None]
  - SUBCUTANEOUS ABSCESS [None]
